FAERS Safety Report 18975266 (Version 1)
Quarter: 2021Q1

REPORT INFORMATION
  Report Type: Report from Study
  Country: CA (occurrence: CA)
  Receive Date: 20210305
  Receipt Date: 20210305
  Transmission Date: 20210420
  Serious: Yes (Other)
  Sender: FDA-Public Use
  Company Number: PHHY2016CA075347

PATIENT
  Age: 55 Year
  Sex: Female

DRUGS (6)
  1. SANDOSTATIN [Suspect]
     Active Substance: OCTREOTIDE ACETATE
  2. SANDOSTATIN LAR DEPOT [Suspect]
     Active Substance: OCTREOTIDE ACETATE
     Indication: CARCINOID TUMOUR
     Dosage: 30 MG, Q4W (EVERY 4 WEEKS)
     Route: 030
     Dates: start: 20160527
  3. SANDOSTATIN [Suspect]
     Active Substance: OCTREOTIDE ACETATE
  4. SANDOSTATIN LAR DEPOT [Suspect]
     Active Substance: OCTREOTIDE ACETATE
  5. SANDOSTATIN [Suspect]
     Active Substance: OCTREOTIDE ACETATE
     Indication: CARCINOID TUMOUR
     Dosage: 100 UG, TID FOR 14 DAYS, LAR AFTER 3RD DAY
     Route: 058
     Dates: start: 20160525, end: 2016
  6. SANDOSTATIN LAR DEPOT [Suspect]
     Active Substance: OCTREOTIDE ACETATE

REACTIONS (15)
  - Blood pressure systolic increased [Unknown]
  - Hot flush [Unknown]
  - Nausea [Unknown]
  - Headache [Recovering/Resolving]
  - Heart rate decreased [Unknown]
  - Faeces discoloured [Unknown]
  - Blood pressure increased [Unknown]
  - Heart rate increased [Recovering/Resolving]
  - Injection site haemorrhage [Unknown]
  - Abdominal pain [Unknown]
  - Abdominal pain upper [Recovered/Resolved]
  - Vascular pain [Recovering/Resolving]
  - Contusion [Unknown]
  - Weight increased [Unknown]
  - Injection site mass [Unknown]

NARRATIVE: CASE EVENT DATE: 20160525
